FAERS Safety Report 9083152 (Version 1)
Quarter: 2013Q1

REPORT INFORMATION
  Report Type: Report from Study
  Country: US (occurrence: US)
  Receive Date: 20130130
  Receipt Date: 20130130
  Transmission Date: 20140127
  Serious: No
  Sender: FDA-Public Use
  Company Number: US-ABBOTT-12P-163-0984221-00

PATIENT
  Age: 56 Year
  Sex: Female

DRUGS (4)
  1. HUMIRA [Suspect]
     Indication: PSORIASIS
     Dates: start: 20120913, end: 20120913
  2. HUMIRA [Suspect]
     Dates: start: 20120920
  3. SYNTHYROID [Concomitant]
     Indication: THYROID DISORDER
     Dosage: 1 PILL DAILY
  4. UNKNOWN BLOOD PRESSURE MEDICATION [Concomitant]
     Indication: BLOOD PRESSURE
     Dosage: 1 PILL DAILY

REACTIONS (1)
  - Injection site pain [Recovered/Resolved]
